FAERS Safety Report 14502919 (Version 3)
Quarter: 2018Q2

REPORT INFORMATION
  Report Type: Report from Study
  Country: ES (occurrence: ES)
  Receive Date: 20180208
  Receipt Date: 20180410
  Transmission Date: 20180711
  Serious: Yes (Death, Hospitalization)
  Sender: FDA-Public Use
  Company Number: ES-ROCHE-2056296

PATIENT
  Age: 71 Year
  Sex: Male
  Weight: 81 kg

DRUGS (14)
  1. OLODATEROL HYDROCHLORIDE/TIOTROPIUM BROMIDE [Concomitant]
     Indication: CHRONIC OBSTRUCTIVE PULMONARY DISEASE
  2. BUDESONIDE/FORMOTEROL [Concomitant]
     Active Substance: BUDESONIDE\FORMOTEROL
     Indication: CHRONIC OBSTRUCTIVE PULMONARY DISEASE
     Route: 050
  3. LORAZEPAM. [Concomitant]
     Active Substance: LORAZEPAM
     Indication: PAIN IN EXTREMITY
     Route: 048
     Dates: start: 20171220
  4. OMEPRAZOLE. [Concomitant]
     Active Substance: OMEPRAZOLE
     Route: 048
  5. MORPHINE SULFATE. [Concomitant]
     Active Substance: MORPHINE SULFATE
     Indication: PAIN IN EXTREMITY
     Route: 048
     Dates: start: 20171220
  6. METAMIZOLE [Concomitant]
     Active Substance: METAMIZOLE
     Indication: INTERVERTEBRAL DISC PROTRUSION
     Route: 048
  7. ABSTRAL [Concomitant]
     Active Substance: FENTANYL CITRATE
     Indication: PAIN IN EXTREMITY
     Route: 048
     Dates: start: 20171220
  8. DEXKETOPROFEN [Concomitant]
     Active Substance: DEXKETOPROFEN
     Indication: INTERVERTEBRAL DISC PROTRUSION
     Route: 048
  9. CALCIUM DOBESILATE [Concomitant]
     Active Substance: CALCIUM DOBESILATE
     Indication: PROPHYLAXIS
     Route: 048
     Dates: start: 20170615
  10. FENTANYL. [Concomitant]
     Active Substance: FENTANYL
     Indication: INTERVERTEBRAL DISC PROTRUSION
     Route: 065
     Dates: start: 20170305
  11. PARACETAMOL [Concomitant]
     Active Substance: ACETAMINOPHEN
     Route: 048
  12. ATEZOLIZUMAB. [Suspect]
     Active Substance: ATEZOLIZUMAB
     Indication: LUNG NEOPLASM MALIGNANT
     Dosage: DATE OF LAST DOSE: 10/JAN/2018
     Route: 042
     Dates: start: 20171016
  13. VITAMIN A/VITAMIN E [Concomitant]
     Indication: PROPHYLAXIS
     Route: 048
     Dates: start: 20170615
  14. EPOETIN ALFA [Concomitant]
     Active Substance: ERYTHROPOIETIN
     Indication: ANAEMIA PROPHYLAXIS
     Route: 058
     Dates: start: 20170517

REACTIONS (2)
  - Pain in extremity [Recovered/Resolved]
  - Pneumonia [Fatal]

NARRATIVE: CASE EVENT DATE: 20171230
